FAERS Safety Report 8377965-9 (Version None)
Quarter: 2012Q2

REPORT INFORMATION
  Report Type: 
  Country: None (occurrence: None)
  Receive Date: 20120522
  Receipt Date: 20120515
  Transmission Date: 20120825
  Serious: Yes (Death, Hospitalization, Other)
  Sender: FDA-Public Use
  Company Number: MX-UCBSA-057449

PATIENT
  Age: 18 Year
  Sex: Male
  Weight: 20 kg

DRUGS (5)
  1. DIGOXIN [Concomitant]
     Route: 048
     Dates: start: 20000101, end: 20120507
  2. FUROSEMIDE [Concomitant]
     Route: 048
     Dates: start: 20000101, end: 20120507
  3. OXCARBAZEPINE [Concomitant]
     Indication: EPILEPSY
     Route: 048
     Dates: start: 20090101, end: 20120508
  4. KEPPRA [Suspect]
     Indication: EPILEPSY
     Route: 048
     Dates: start: 20071120, end: 20120508
  5. VALPROATE MAGNESIUM [Concomitant]
     Indication: EPILEPSY
     Route: 048
     Dates: start: 20090101, end: 20120508

REACTIONS (5)
  - ACUTE RESPIRATORY DISTRESS SYNDROME [None]
  - ARRHYTHMIA [None]
  - ACUTE PULMONARY OEDEMA [None]
  - CARDIO-RESPIRATORY ARREST [None]
  - PNEUMONIA [None]
